FAERS Safety Report 12580948 (Version 4)
Quarter: 2016Q4

REPORT INFORMATION
  Report Type: Report from Study
  Country: US (occurrence: US)
  Receive Date: 20160721
  Receipt Date: 20161010
  Transmission Date: 20170207
  Serious: Yes (Other)
  Sender: FDA-Public Use
  Company Number: US-JNJFOC-20160715579

PATIENT
  Age: 74 Year
  Sex: Male
  Weight: 49 kg

DRUGS (11)
  1. ZOFRAN [Concomitant]
     Active Substance: ONDANSETRON HYDROCHLORIDE
     Indication: NAUSEA
     Dosage: Q8HR, PRN
  2. MIRALAX [Concomitant]
     Active Substance: POLYETHYLENE GLYCOL 3350
     Dosage: 1 DF, QD
     Route: 048
  3. IMBRUVICA [Suspect]
     Active Substance: IBRUTINIB
     Indication: WALDENSTROM^S MACROGLOBULINAEMIA
     Route: 048
     Dates: start: 20160707, end: 20160713
  4. FLONASE [Concomitant]
     Active Substance: FLUTICASONE PROPIONATE
     Dosage: 50 MCG/ACTUATION, SNIFF AND INHALE 2 SPRAYS INTO EACH NOSTRIL ONCE PER DAY
  5. LINZESS [Concomitant]
     Active Substance: LINACLOTIDE
  6. ERYTHROMYCIN. [Concomitant]
     Active Substance: ERYTHROMYCIN
     Dosage: APPLY TO EYELIDS EVERY EVENING FOR 1 WEEK A MONTH
  7. IMBRUVICA [Suspect]
     Active Substance: IBRUTINIB
     Indication: WALDENSTROM^S MACROGLOBULINAEMIA
     Route: 048
  8. MIRAPEX [Concomitant]
     Active Substance: PRAMIPEXOLE DIHYDROCHLORIDE
     Dosage: TAKE 2-3 TABLETS AT BED TIME
  9. TRAMADOL HCL [Concomitant]
     Active Substance: TRAMADOL HYDROCHLORIDE
     Dosage: 1-2 TABLETS AT BED TIME AS NEEDED
  10. IPRATROPIUM BROMIDE. [Concomitant]
     Active Substance: IPRATROPIUM BROMIDE
     Dosage: ADMINISTER 2 SPRAYS IN EACH NOSTRIL 3 TIMES DAILY OR AS NEEDED TO CONTROL DRAINAGE
  11. ALEVE [Concomitant]
     Active Substance: NAPROXEN SODIUM
     Dosage: 2 DF AT BED TIME AS NEEDED

REACTIONS (4)
  - Erythema [Unknown]
  - Arrhythmia [Unknown]
  - Malaise [Not Recovered/Not Resolved]
  - Angina pectoris [Recovered/Resolved]

NARRATIVE: CASE EVENT DATE: 201607
